FAERS Safety Report 6609609-8 (Version None)
Quarter: 2010Q1

REPORT INFORMATION
  Report Type: 
  Country: None (occurrence: None)
  Receive Date: 20100302
  Receipt Date: 20100301
  Transmission Date: 20100710
  Serious: Yes (Hospitalization)
  Sender: FDA-Public Use
  Company Number: ES-BRISTOL-MYERS SQUIBB COMPANY-14979140

PATIENT
  Age: 66 Year
  Sex: Male

DRUGS (1)
  1. IRBESARTAN + HCTZ [Suspect]
     Dosage: 1 DOSAGEFORM = 150/50MG

REACTIONS (2)
  - ACUTE RESPIRATORY FAILURE [None]
  - PULMONARY OEDEMA [None]
